FAERS Safety Report 21113235 (Version 2)
Quarter: 2022Q3

REPORT INFORMATION
  Report Type: Spontaneous
  Country: US (occurrence: US)
  Receive Date: 20220721
  Receipt Date: 20220725
  Transmission Date: 20221027
  Serious: No
  Sender: FDA-Public Use
  Company Number: US-PFIZER INC-202200991154

PATIENT
  Age: 89 Year
  Sex: Female

DRUGS (1)
  1. PAXLOVID [Suspect]
     Active Substance: NIRMATRELVIR\RITONAVIR
     Indication: COVID-19 treatment
     Dosage: 3 DOSES (THE EVENING DOSE, MORNING DOSE, AND EVENING DOSE)

REACTIONS (7)
  - Dysphagia [Unknown]
  - Dysphonia [Unknown]
  - Throat tightness [Unknown]
  - Fatigue [Unknown]
  - Malaise [Unknown]
  - Wrong technique in product usage process [Unknown]
  - Intentional product misuse [Unknown]
